FAERS Safety Report 5266067-6 (Version None)
Quarter: 2007Q1

REPORT INFORMATION
  Report Type: 
  Country: None (occurrence: None)
  Receive Date: 20070315
  Receipt Date: 20070313
  Transmission Date: 20070707
  Serious: Yes (Death, Hospitalization)
  Sender: FDA-Public Use
  Company Number: CZ-BRISTOL-MYERS SQUIBB COMPANY-13532924

PATIENT
  Age: 66 Year
  Sex: Female

DRUGS (4)
  1. DASATINIB [Suspect]
     Indication: LEUKAEMIA
     Route: 048
     Dates: start: 20060927
  2. DEXAMETHASONE [Concomitant]
     Dates: start: 20060821, end: 20061004
  3. FLUCONAZOLE [Concomitant]
     Dates: start: 20060821, end: 20061004
  4. CIPROFLOXACIN [Concomitant]
     Dates: start: 20060821, end: 20061004

REACTIONS (1)
  - SEPTIC SHOCK [None]
